FAERS Safety Report 7951992-5 (Version None)
Quarter: 2011Q4

REPORT INFORMATION
  Report Type: 
  Country: None (occurrence: None)
  Receive Date: 20111201
  Receipt Date: 20111121
  Transmission Date: 20120403
  Serious: Yes (Hospitalization)
  Sender: FDA-Public Use
  Company Number: DE-PFIZER INC-2011277732

PATIENT
  Age: 55 Year
  Sex: Male
  Weight: 176 kg

DRUGS (4)
  1. TEMSIROLIMUS [Suspect]
     Indication: BRAIN NEOPLASM
     Dosage: 20 MG, DAILY DOSE UNKNOWN FREQUENCY
     Dates: start: 20110726, end: 20110815
  2. DEXAMETHASONE [Concomitant]
     Indication: GLIOBLASTOMA
     Dosage: 8MG, 4MG, 0MG AS DAILY DOSE
  3. IRINOTECAN HCL [Suspect]
     Indication: BRAIN NEOPLASM
     Dosage: 180 MG, DAILY DOSE UNKNOWN FREQUENCY
     Dates: start: 20110712, end: 20110815
  4. DEXAMETHASONE [Concomitant]
     Indication: OEDEMA

REACTIONS (4)
  - TACHYCARDIA [None]
  - PYREXIA [None]
  - DIARRHOEA [None]
  - DEHYDRATION [None]
